FAERS Safety Report 7425801-7 (Version None)
Quarter: 2011Q2

REPORT INFORMATION
  Report Type: 
  Country: None (occurrence: None)
  Receive Date: 20110420
  Receipt Date: 20110415
  Transmission Date: 20111010
  Serious: Yes (Other)
  Sender: FDA-Public Use
  Company Number: SG-PFIZER INC-2011083189

PATIENT
  Age: 32 Year
  Sex: Male

DRUGS (1)
  1. DOXORUBICIN HCL [Suspect]
     Dosage: UNK

REACTIONS (1)
  - BRONCHOSPASM [None]
